FAERS Safety Report 24203050 (Version 2)
Quarter: 2025Q1

REPORT INFORMATION
  Report Type: Spontaneous
  Country: US (occurrence: US)
  Receive Date: 20240813
  Receipt Date: 20250327
  Transmission Date: 20250409
  Serious: No
  Sender: AMGEN
  Company Number: US-AMGEN-USASP2024159002

PATIENT
  Age: 41 Year
  Sex: Female

DRUGS (5)
  1. TEPEZZA [Suspect]
     Active Substance: TEPROTUMUMAB-TRBW
     Indication: Endocrine ophthalmopathy
     Dosage: 1 DOSAGE FORM, Q3WK (FIRST INFUSION) (1 INJECTION EVERY THREE WEEKS)
     Route: 042
     Dates: start: 202306
  2. TEPEZZA [Suspect]
     Active Substance: TEPROTUMUMAB-TRBW
     Dosage: 1 DOSAGE FORM, Q3WK (1 INJECTION EVERY THREE WEEKS) (SECOND INFUSION)
     Route: 042
     Dates: start: 2023
  3. TEPEZZA [Suspect]
     Active Substance: TEPROTUMUMAB-TRBW
     Dosage: 1 DOSAGE FORM, Q3WK (1 INJECTION EVERY THREE WEEKS) (THIRD INFUSION)
     Route: 042
     Dates: start: 2023
  4. TEPEZZA [Suspect]
     Active Substance: TEPROTUMUMAB-TRBW
     Dosage: 1 DOSAGE FORM, Q3WK (1 INJECTION EVERY THREE WEEKS) (FOURTH INFUSION)
     Route: 042
     Dates: start: 2023
  5. TEPEZZA [Suspect]
     Active Substance: TEPROTUMUMAB-TRBW
     Dosage: 1 DOSAGE FORM, Q3WK (1 INJECTION EVERY THREE WEEKS) (EIGHTH INFUSION)
     Route: 042
     Dates: start: 2023, end: 202310

REACTIONS (1)
  - Muscle spasms [Unknown]

NARRATIVE: CASE EVENT DATE: 20230601
